FAERS Safety Report 6403424-6 (Version None)
Quarter: 2009Q4

REPORT INFORMATION
  Report Type: 
  Country: None (occurrence: None)
  Receive Date: 20091016
  Receipt Date: 20091007
  Transmission Date: 20100525
  Serious: Yes (Other)
  Sender: FDA-Public Use
  Company Number: NL-TYCO HEALTHCARE/MALLINCKRODT-T200901877

PATIENT

DRUGS (5)
  1. TRAMADOL [Suspect]
     Indication: ANALGESIC THERAPY
     Dosage: 150 MG, UNK
  2. TEMAZEPAM [Suspect]
  3. CITALOPRAM HYDROBROMIDE [Suspect]
     Dosage: 40 MG, UNK
  4. TRYPHTOPHAN [Suspect]
  5. VALPROATE SODIUM [Suspect]

REACTIONS (1)
  - SEROTONIN SYNDROME [None]
